FAERS Safety Report 5620028-3 (Version None)
Quarter: 2008Q1

REPORT INFORMATION
  Report Type: 
  Country: None (occurrence: None)
  Receive Date: 20080208
  Receipt Date: 20080201
  Transmission Date: 20080703
  Serious: Yes (Other)
  Sender: FDA-Public Use
  Company Number: JP-ELI_LILLY_AND_COMPANY-JP200802000333

PATIENT
  Sex: Female

DRUGS (1)
  1. EVISTA [Suspect]
     Indication: OSTEOPOROSIS POSTMENOPAUSAL
     Dosage: 60 MG, DAILY (1/D)
     Route: 048
     Dates: start: 20070627, end: 20070727

REACTIONS (5)
  - CONVULSION [None]
  - DIARRHOEA [None]
  - HOT FLUSH [None]
  - OEDEMA PERIPHERAL [None]
  - VISION BLURRED [None]
